FAERS Safety Report 9011021 (Version 1)
Quarter: 2013Q1

REPORT INFORMATION
  Report Type: Spontaneous
  Country: US (occurrence: US)
  Receive Date: 20130109
  Receipt Date: 20130109
  Transmission Date: 20140127
  Serious: No
  Sender: FDA-Public Use
  Company Number: US-ASTRAZENECA-2013SE00731

PATIENT
  Age: 77 Year
  Sex: Male
  Weight: 61.2 kg

DRUGS (6)
  1. SYMBICORT [Suspect]
     Dosage: 160/4.5 MCG BID
     Route: 055
  2. BENAZEPRIL [Concomitant]
     Indication: BLOOD PRESSURE
  3. LOVASTATIN [Concomitant]
     Indication: BLOOD CHOLESTEROL ABNORMAL
  4. CLOPIDOGREL [Concomitant]
     Indication: ANTICOAGULANT THERAPY
  5. ATENOLOL [Concomitant]
     Indication: BLOOD PRESSURE ABNORMAL
  6. ISOSORBIDE [Concomitant]
     Indication: MYOCARDIAL INFARCTION

REACTIONS (1)
  - Drug dose omission [Unknown]
